FAERS Safety Report 9210420 (Version 2)
Quarter: 2013Q2

REPORT INFORMATION
  Report Type: Spontaneous
  Country: FR (occurrence: FR)
  Receive Date: 20130404
  Receipt Date: 20130501
  Transmission Date: 20140414
  Serious: Yes (Hospitalization, Other)
  Sender: FDA-Public Use
  Company Number: FR-JNJFOC-20130400121

PATIENT
  Age: 74 Year
  Sex: Male

DRUGS (5)
  1. ACTIFED JOUR ET NUIT [Suspect]
     Indication: NASOPHARYNGITIS
     Route: 048
     Dates: start: 20130306, end: 20130307
  2. ACTIFED JOUR ET NUIT [Suspect]
     Indication: NASOPHARYNGITIS
     Route: 048
     Dates: start: 20130306, end: 20130307
  3. INEGY [Suspect]
     Indication: PRODUCT USED FOR UNKNOWN INDICATION
     Route: 048
     Dates: start: 201109, end: 20130308
  4. DIAMICRON [Concomitant]
     Route: 065
  5. PARIET [Concomitant]
     Route: 065

REACTIONS (4)
  - Angina pectoris [Recovered/Resolved]
  - Pancreatitis acute [Recovered/Resolved]
  - Abdominal pain [Recovered/Resolved]
  - Cholelithiasis [Unknown]
